FAERS Safety Report 8283578-X (Version None)
Quarter: 2012Q2

REPORT INFORMATION
  Report Type: 
  Country: None (occurrence: None)
  Receive Date: 20120413
  Receipt Date: 20120411
  Transmission Date: 20120825
  Serious: Yes (Other)
  Sender: FDA-Public Use
  Company Number: IL-PFIZER INC-2012090187

PATIENT
  Age: 70 Year
  Sex: Female

DRUGS (6)
  1. LEVOFLOXACIN [Suspect]
     Indication: ANTIBIOTIC THERAPY
  2. CIPROFLOXACIN [Suspect]
     Indication: ANTIBIOTIC THERAPY
  3. AMPICILLIN SODIUM [Suspect]
     Indication: ANTIBIOTIC THERAPY
  4. VANCOMYCIN HCL [Suspect]
     Indication: ANTIBIOTIC THERAPY
  5. AMIKACIN SULFATE [Suspect]
     Indication: ANTIBIOTIC THERAPY
  6. PIPERACILLIN AND TAZOBACTAM [Suspect]
     Indication: ANTIBIOTIC THERAPY

REACTIONS (3)
  - THROMBOCYTOPENIA [None]
  - ACUTE RESPIRATORY DISTRESS SYNDROME [None]
  - HYPOGLYCAEMIA [None]
